FAERS Safety Report 24453678 (Version 2)
Quarter: 2024Q4

REPORT INFORMATION
  Report Type: Report from Study
  Country: US (occurrence: US)
  Receive Date: 20241017
  Receipt Date: 20241018
  Transmission Date: 20250114
  Serious: No
  Sender: ROCHE
  Company Number: US-ROCHE-3387127

PATIENT
  Age: 60 Year
  Sex: Male

DRUGS (15)
  1. RITUXAN [Suspect]
     Active Substance: RITUXIMAB
     Indication: Pemphigus
     Dosage: THEN EVERY 6 MONTHS, DATE OF SERVICE 07/MAR/2023,
     Route: 041
  2. RITUXAN [Suspect]
     Active Substance: RITUXIMAB
     Dosage: DATE OF SERVICE 09/JUN/2023, DATE OF SERVICE- 25/MAR/2024
     Route: 041
  3. RITUXAN [Suspect]
     Active Substance: RITUXIMAB
     Dosage: DATE OF SERVICE 23/JUN/2023
     Route: 041
  4. DELTASONE [Concomitant]
     Active Substance: PREDNISONE
  5. PRILOSEC [Concomitant]
     Active Substance: OMEPRAZOLE MAGNESIUM
  6. MEDROL [Concomitant]
     Active Substance: METHYLPREDNISOLONE
  7. METHOTREXATE [Concomitant]
     Active Substance: METHOTREXATE
  8. GLUCOPHAGE [Concomitant]
     Active Substance: METFORMIN HYDROCHLORIDE
  9. LANTUS SOLOSTAR [Concomitant]
     Active Substance: INSULIN GLARGINE
  10. GLUCOTROL [Concomitant]
     Active Substance: GLIPIZIDE
  11. FOLVITE [Concomitant]
     Active Substance: FOLIC ACID
  12. CYMBALTA [Concomitant]
     Active Substance: DULOXETINE HYDROCHLORIDE
  13. TEMOVATE [Concomitant]
     Active Substance: CLOBETASOL PROPIONATE
  14. WELLBUTRIN XL [Concomitant]
     Active Substance: BUPROPION HYDROCHLORIDE
  15. DOXYCYCLINE HYCLATE [Concomitant]
     Active Substance: DOXYCYCLINE HYCLATE

REACTIONS (2)
  - Off label use [Unknown]
  - No adverse event [Unknown]
